FAERS Safety Report 10069717 (Version 3)
Quarter: 2014Q2

REPORT INFORMATION
  Report Type: Spontaneous
  Country: JP (occurrence: JP)
  Receive Date: 20140410
  Receipt Date: 20140424
  Transmission Date: 20141212
  Serious: Yes (Death)
  Sender: FDA-Public Use
  Company Number: JP-AMGEN-JPNSP2014023918

PATIENT
  Age: 81 Year
  Sex: Female

DRUGS (6)
  1. ARANESP [Suspect]
     Indication: NEPHROGENIC ANAEMIA
     Dosage: 180 MUG, Q2WK
     Route: 040
     Dates: start: 20140109, end: 20140207
  2. ANAFRANIL [Suspect]
     Indication: DEPRESSION
     Dosage: 25 MG, UNK
     Route: 041
     Dates: start: 20140104, end: 20140212
  3. PAXIL                              /00830802/ [Concomitant]
     Indication: DEPRESSION
     Dosage: 12.5 MG, QD
     Route: 048
     Dates: start: 20131227, end: 20131231
  4. PANSPORIN [Concomitant]
     Indication: INFECTION PROPHYLAXIS
     Dosage: 0.5 G, UNK
     Route: 030
     Dates: start: 20140104, end: 20140108
  5. VOLTAREN                           /00372302/ [Concomitant]
     Indication: PYREXIA
     Dosage: 12.5 MG, QD
     Route: 054
     Dates: start: 20140104, end: 20140108
  6. SAWACILLIN [Concomitant]
     Dosage: 250 MG, TID
     Route: 048
     Dates: start: 20140104, end: 20140203

REACTIONS (1)
  - Hepatitis fulminant [Fatal]
